FAERS Safety Report 15996551 (Version 1)
Quarter: 2019Q1

REPORT INFORMATION
  Report Type: Report from Study
  Country: PK (occurrence: PK)
  Receive Date: 20190222
  Receipt Date: 20190222
  Transmission Date: 20190418
  Serious: Yes (Death, Other)
  Sender: FDA-Public Use
  Company Number: PHHY2019PK040319

PATIENT
  Sex: Male
  Weight: 40 kg

DRUGS (1)
  1. TASIGNA [Suspect]
     Active Substance: NILOTINIB
     Indication: CHRONIC MYELOID LEUKAEMIA
     Dosage: 2 DF, BID (800 G)
     Route: 048
     Dates: start: 20180515

REACTIONS (4)
  - Platelet count decreased [Unknown]
  - Cardiopulmonary failure [Fatal]
  - White blood cell count increased [Unknown]
  - Haemoglobin decreased [Unknown]
